FAERS Safety Report 5565925-2 (Version None)
Quarter: 2007Q4

REPORT INFORMATION
  Report Type: 
  Country: None (occurrence: None)
  Receive Date: 20071213
  Receipt Date: 20071130
  Transmission Date: 20080405
  Serious: Yes (Other)
  Sender: FDA-Public Use
  Company Number: PL-1164703

PATIENT
  Age: 27 Year
  Sex: Female

DRUGS (1)
  1. BSS [Suspect]
     Indication: EYE LASER SURGERY
     Dosage: 15 ML INTRAOCULAR
     Route: 031
     Dates: start: 20071011

REACTIONS (1)
  - KERATOPATHY [None]
